FAERS Safety Report 8047919-0 (Version None)
Quarter: 2012Q1

REPORT INFORMATION
  Report Type: 
  Country: None (occurrence: None)
  Receive Date: 20120116
  Receipt Date: 20120110
  Transmission Date: 20120608
  Serious: Yes (Other)
  Sender: FDA-Public Use
  Company Number: AU-AMGEN-AUSSP2012002084

PATIENT
  Age: 99 Year
  Sex: Female

DRUGS (1)
  1. ARANESP [Suspect]
     Indication: ANAEMIA
     Dosage: 30 MUG, QWK
     Route: 058

REACTIONS (2)
  - HAEMOGLOBIN DECREASED [None]
  - HAEMORRHAGE [None]
